FAERS Safety Report 18793793 (Version 2)
Quarter: 2021Q1

REPORT INFORMATION
  Report Type: Spontaneous
  Country: US (occurrence: US)
  Receive Date: 20210127
  Receipt Date: 20210302
  Transmission Date: 20210419
  Serious: Yes (Hospitalization)
  Sender: FDA-Public Use
  Company Number: US-ROCHE-2756709

PATIENT
  Age: 66 Year
  Sex: Male

DRUGS (8)
  1. PRAMIPEXOLE. [Concomitant]
     Active Substance: PRAMIPEXOLE
  2. GOCOVRI [Suspect]
     Active Substance: AMANTADINE
     Indication: DYSKINESIA
     Dosage: AT BEDTIME, THERAPY ONGOING STATUS: NO.
     Route: 048
     Dates: start: 20190321, end: 202012
  3. GOCOVRI [Suspect]
     Active Substance: AMANTADINE
     Dosage: AT BEDTIME , THERAPY ONGOING STATUS: YES.
     Route: 048
     Dates: start: 202012
  4. KLONOPIN [Suspect]
     Active Substance: CLONAZEPAM
     Indication: INSOMNIA
     Dosage: AT BEDTIME, THERAPY ONGOING STATUS: NO.
     Route: 048
     Dates: end: 20201215
  5. ATORVASTATIN [Concomitant]
     Active Substance: ATORVASTATIN
  6. SEROQUEL [Concomitant]
     Active Substance: QUETIAPINE FUMARATE
  7. RYTARY [Concomitant]
     Active Substance: CARBIDOPA\LEVODOPA
     Dosage: 48.75/195 MG
  8. AMANTADINE. [Concomitant]
     Active Substance: AMANTADINE HYDROCHLORIDE
     Indication: DRUG THERAPY

REACTIONS (4)
  - Intentional product use issue [Unknown]
  - Treatment noncompliance [Unknown]
  - Off label use [Unknown]
  - Psychotic disorder [Recovered/Resolved]

NARRATIVE: CASE EVENT DATE: 202012
